FAERS Safety Report 7688904-8 (Version None)
Quarter: 2011Q3

REPORT INFORMATION
  Report Type: 
  Country: None (occurrence: None)
  Receive Date: 20110817
  Receipt Date: 20110805
  Transmission Date: 20111222
  Serious: Yes (Other)
  Sender: FDA-Public Use
  Company Number: PHHY2011AU64522

PATIENT
  Age: 85 Year
  Sex: Male

DRUGS (5)
  1. ATORVASTATIN [Concomitant]
     Indication: BLOOD CHOLESTEROL INCREASED
     Dosage: 20 MG, NOCTE
  2. CLOPIDOGREL [Concomitant]
     Indication: PERIPHERAL VASCULAR DISORDER
     Dosage: 75 MG, DAILY
  3. OXYCODONE HCL [Concomitant]
     Indication: SKIN ULCER
     Dosage: 5 MG, QID
  4. METOPROLOL TARTRATE [Concomitant]
     Indication: BLOOD PRESSURE INCREASED
     Dosage: 25 MG, DAILY
  5. TASIGNA [Suspect]
     Indication: CHRONIC MYELOID LEUKAEMIA
     Dosage: 200 MG, BID
     Route: 048
     Dates: start: 20101221, end: 20110705

REACTIONS (4)
  - DRUG INEFFECTIVE [None]
  - GANGRENE [None]
  - PLEURAL EFFUSION [None]
  - GENE MUTATION IDENTIFICATION TEST POSITIVE [None]
